FAERS Safety Report 6091387-5 (Version None)
Quarter: 2009Q1

REPORT INFORMATION
  Report Type: 
  Country: None (occurrence: None)
  Receive Date: 20090225
  Receipt Date: 20081205
  Transmission Date: 20090719
  Serious: No
  Sender: FDA-Public Use
  Company Number: A0758436A

PATIENT
  Age: 46 Month
  Sex: Female
  Weight: 19.1 kg

DRUGS (5)
  1. VERAMYST [Suspect]
     Indication: MULTIPLE ALLERGIES
     Dosage: 2SPR AT NIGHT
     Route: 045
     Dates: start: 20081114, end: 20081118
  2. SINGULAIR [Concomitant]
     Dosage: 4MG PER DAY
     Route: 048
  3. POLYTUSSIN [Concomitant]
     Dosage: .5TSP FOUR TIMES PER DAY
  4. MULTI-VITAMIN [Concomitant]
  5. FLUORIDE [Concomitant]

REACTIONS (3)
  - PSYCHOMOTOR HYPERACTIVITY [None]
  - RESTLESSNESS [None]
  - SLEEP DISORDER [None]
